FAERS Safety Report 13460138 (Version 1)
Quarter: 2017Q2

REPORT INFORMATION
  Report Type: Spontaneous
  Country: US (occurrence: US)
  Receive Date: 20170420
  Receipt Date: 20170420
  Transmission Date: 20170830
  Serious: No
  Sender: FDA-Public Use
  Company Number: US-ASTRAZENECA-2017SE38728

PATIENT
  Age: 87 Year
  Sex: Female
  Weight: 50.8 kg

DRUGS (3)
  1. PROGESTERONE. [Concomitant]
     Active Substance: PROGESTERONE
     Indication: HORMONE REPLACEMENT THERAPY
     Route: 061
  2. VITAMIN [Concomitant]
     Active Substance: VITAMINS
  3. SYMBICORT [Suspect]
     Active Substance: BUDESONIDE\FORMOTEROL FUMARATE DIHYDRATE
     Indication: ASTHMA
     Dosage: TWO PUFFS TWICE DAILY
     Route: 055
     Dates: start: 2015, end: 20170408

REACTIONS (13)
  - Arthralgia [Unknown]
  - Drug ineffective [Unknown]
  - Intentional product misuse [Recovered/Resolved]
  - Hypoacusis [Not Recovered/Not Resolved]
  - Body height decreased [Unknown]
  - Product quality issue [Unknown]
  - Cartilage injury [Not Recovered/Not Resolved]
  - Drug dose omission [Unknown]
  - Osteoporosis [Not Recovered/Not Resolved]
  - Vision blurred [Not Recovered/Not Resolved]
  - Dyspnoea [Unknown]
  - Product use issue [Unknown]
  - Dysphonia [Not Recovered/Not Resolved]

NARRATIVE: CASE EVENT DATE: 2016
